FAERS Safety Report 4879262-2 (Version None)
Quarter: 2005Q4

REPORT INFORMATION
  Report Type: 
  Country: None (occurrence: None)
  Receive Date: 20051207
  Receipt Date: 20041230
  Transmission Date: 20060501
  Serious: Yes (Other)
  Sender: FDA-Public Use
  Company Number: 2005001962

PATIENT
  Age: 44 Year
  Sex: Female
  Weight: 81.6475 kg

DRUGS (8)
  1. VIAGRA [Suspect]
     Indication: PULMONARY HYPERTENSION
     Dosage: 300 MG (100 MG, 3 IN 1 D), ORAL
     Route: 048
     Dates: start: 20040917
  2. FUROSEMIDE [Concomitant]
  3. DIGOXIN [Concomitant]
  4. LANSOPRAZOLE (LANZOPRAZOLE) [Concomitant]
  5. BENAZEPRIL HYDROCHLORIDE (BENEAZEPRIL HYDROCHLORIDE) [Concomitant]
  6. DILTIAZEM [Concomitant]
  7. COMBIVENT [Concomitant]
  8. SALBUTAMOL (SALBUTAMOL) [Concomitant]

REACTIONS (8)
  - COUGH [None]
  - DRUG INEFFECTIVE [None]
  - DYSPNOEA [None]
  - INSOMNIA [None]
  - NASOPHARYNGITIS [None]
  - PULMONARY ARTERIAL PRESSURE INCREASED [None]
  - SINUS DISORDER [None]
  - UNEVALUABLE EVENT [None]
